FAERS Safety Report 10335113 (Version 1)
Quarter: 2014Q3

REPORT INFORMATION
  Report Type: Spontaneous
  Country: RU (occurrence: RU)
  Receive Date: 20140723
  Receipt Date: 20140723
  Transmission Date: 20150326
  Serious: Yes (Life-Threatening)
  Sender: FDA-Public Use
  Company Number: RU-TEVA-496323ISR

PATIENT
  Age: 57 Year
  Sex: Female

DRUGS (5)
  1. CO-PERINEVA [Concomitant]
  2. CARDIOMAGNYL [Concomitant]
     Active Substance: ASPIRIN\MAGNESIUM HYDROXIDE
  3. CARBAMAZEPINE. [Concomitant]
     Active Substance: CARBAMAZEPINE
  4. TOPSAVER [Suspect]
     Active Substance: TOPIRAMATE
     Route: 048
  5. ATORIS [Concomitant]
     Active Substance: ATORVASTATIN CALCIUM

REACTIONS (2)
  - Epilepsy [Unknown]
  - Drug ineffective [Unknown]
